FAERS Safety Report 6059053-X (Version None)
Quarter: 2009Q1

REPORT INFORMATION
  Report Type: 
  Country: None (occurrence: None)
  Receive Date: 20090130
  Receipt Date: 20090119
  Transmission Date: 20090719
  Serious: Yes (Hospitalization)
  Sender: FDA-Public Use
  Company Number: B0554952A

PATIENT
  Age: 82 Year
  Sex: Female

DRUGS (9)
  1. ZINNAT INJECTABLE [Suspect]
     Indication: DRUG USE FOR UNKNOWN INDICATION
     Route: 042
     Dates: start: 20081007, end: 20081007
  2. NIMBEX [Suspect]
     Dosage: 14MG PER DAY
     Route: 042
     Dates: start: 20081007, end: 20081007
  3. DIPRIVAN [Suspect]
     Dosage: 30MG PER DAY
     Route: 042
     Dates: start: 20081007, end: 20081007
  4. KETAMINE PANPHARMA [Suspect]
     Route: 042
     Dates: start: 20081007, end: 20081007
  5. ETOMIDATE [Suspect]
     Indication: DRUG USE FOR UNKNOWN INDICATION
     Dosage: 1UNIT SINGLE DOSE
     Route: 042
     Dates: start: 20081007, end: 20081007
  6. EXACYL [Suspect]
     Indication: DRUG USE FOR UNKNOWN INDICATION
     Route: 042
     Dates: start: 20081007, end: 20081007
  7. EUPRESSYL [Suspect]
     Indication: DRUG USE FOR UNKNOWN INDICATION
     Dosage: 10MG SINGLE DOSE
     Route: 042
     Dates: start: 20081007, end: 20081007
  8. SUFENTA PRESERVATIVE FREE [Suspect]
     Indication: DRUG USE FOR UNKNOWN INDICATION
     Route: 042
     Dates: start: 20081007, end: 20081007
  9. HEPARIN [Suspect]
     Indication: DRUG USE FOR UNKNOWN INDICATION
     Dosage: 17000IU SINGLE DOSE
     Route: 065
     Dates: start: 20081007, end: 20081007

REACTIONS (4)
  - ANAPHYLACTIC SHOCK [None]
  - HAEMODYNAMIC INSTABILITY [None]
  - HYPOTENSION [None]
  - VASOPLEGIA SYNDROME [None]
